FAERS Safety Report 19521295 (Version 1)
Quarter: 2021Q3

REPORT INFORMATION
  Report Type: Spontaneous
  Country: US (occurrence: US)
  Receive Date: 20210712
  Receipt Date: 20210712
  Transmission Date: 20211014
  Serious: No
  Sender: FDA-Public Use
  Company Number: US-PFIZER INC-2021405715

PATIENT
  Age: 59 Year
  Sex: Female
  Weight: 54.43 kg

DRUGS (1)
  1. TIGAN [Suspect]
     Active Substance: TRIMETHOBENZAMIDE HYDROCHLORIDE
     Indication: NAUSEA
     Dosage: 300 MG, 3X/DAY

REACTIONS (5)
  - Product odour abnormal [Unknown]
  - Dysgeusia [Unknown]
  - Vomiting [Unknown]
  - Illness [Unknown]
  - Abdominal discomfort [Unknown]
